FAERS Safety Report 13267760 (Version 1)
Quarter: 2017Q1

REPORT INFORMATION
  Report Type: Spontaneous
  Country: US (occurrence: US)
  Receive Date: 20170223
  Receipt Date: 20170223
  Transmission Date: 20170428
  Serious: Yes (Disabling)
  Sender: FDA-Public Use
  Company Number: None

PATIENT
  Sex: Male
  Weight: 65.25 kg

DRUGS (2)
  1. DEXAMETHASONE. [Suspect]
     Active Substance: DEXAMETHASONE
     Indication: PLASMA CELL MYELOMA
     Dosage: ?          QUANTITY:1 TABLET(S);?EVERY 8 HOURS ORAL
     Route: 048
     Dates: start: 20170210
  2. CALCIUM [Concomitant]
     Active Substance: CALCIUM

REACTIONS (1)
  - Anal incontinence [None]

NARRATIVE: CASE EVENT DATE: 20170222
